FAERS Safety Report 12442026 (Version 5)
Quarter: 2017Q2

REPORT INFORMATION
  Report Type: Report from Study
  Country: FR (occurrence: FR)
  Receive Date: 20160607
  Receipt Date: 20170503
  Transmission Date: 20170830
  Serious: Yes (Hospitalization)
  Sender: FDA-Public Use
  Company Number: FR-ROCHE-1767927

PATIENT
  Age: 70 Year
  Sex: Male

DRUGS (33)
  1. OBINUTUZUMAB [Suspect]
     Active Substance: OBINUTUZUMAB
     Dosage: C4 D1.
     Route: 042
     Dates: start: 20160426
  2. BENDAMUSTINE [Suspect]
     Active Substance: BENDAMUSTINE
     Dosage: C5 D2.
     Route: 042
     Dates: start: 20160525
  3. SOLUPRED (FRANCE) [Concomitant]
     Active Substance: PREDNISOLONE
     Indication: PREMEDICATION
     Dosage: SINGLE DOSE.
     Route: 048
     Dates: start: 20160126, end: 20160126
  4. SODIUM BICARBONATE. [Concomitant]
     Active Substance: SODIUM BICARBONATE
     Route: 048
     Dates: start: 20160415
  5. OBINUTUZUMAB [Suspect]
     Active Substance: OBINUTUZUMAB
     Dosage: C2 D1.
     Route: 042
     Dates: start: 20160301
  6. BENDAMUSTINE [Suspect]
     Active Substance: BENDAMUSTINE
     Indication: CHRONIC LYMPHOCYTIC LEUKAEMIA
     Dosage: C1 D1.?LAST DOSE PRIOR TO SAE: 25/MAY/2016.
     Route: 042
     Dates: start: 20160126
  7. BENDAMUSTINE [Suspect]
     Active Substance: BENDAMUSTINE
     Dosage: C3 D2.
     Route: 042
     Dates: start: 20160330
  8. BENDAMUSTINE [Suspect]
     Active Substance: BENDAMUSTINE
     Dosage: C4 D1.
     Route: 042
     Dates: start: 20160426
  9. BACTRIM [Concomitant]
     Active Substance: SULFAMETHOXAZOLE\TRIMETHOPRIM
     Indication: PROPHYLAXIS
     Dosage: THREE TIMES A WEEK.
     Route: 048
     Dates: start: 20160128
  10. ZOPHREN [Concomitant]
     Active Substance: ONDANSETRON
     Indication: PREMEDICATION
     Dosage: AS REQUIRED.
     Route: 042
     Dates: start: 20160126
  11. AZOPT [Concomitant]
     Active Substance: BRINZOLAMIDE
     Dosage: DOSE: 1 DROP
     Route: 050
     Dates: start: 2013
  12. FORLAX [Concomitant]
     Active Substance: POLYETHYLENE GLYCOL 4000
     Route: 048
     Dates: start: 20160426
  13. OBINUTUZUMAB [Suspect]
     Active Substance: OBINUTUZUMAB
     Dosage: C1 D2.
     Route: 042
     Dates: start: 20160127
  14. BENDAMUSTINE [Suspect]
     Active Substance: BENDAMUSTINE
     Dosage: C4 D2.
     Route: 042
     Dates: start: 20160427
  15. ZELITREX [Concomitant]
     Active Substance: VALACYCLOVIR HYDROCHLORIDE
     Indication: PROPHYLAXIS
     Route: 048
  16. ZOPHREN [Concomitant]
     Active Substance: ONDANSETRON
     Route: 048
     Dates: start: 20160426
  17. TADENAN [Concomitant]
     Active Substance: PYGEUM
     Route: 048
  18. BENDAMUSTINE [Suspect]
     Active Substance: BENDAMUSTINE
     Dosage: C1 D2.
     Route: 042
     Dates: start: 20160128
  19. ZARZIO [Concomitant]
     Active Substance: FILGRASTIM
     Indication: PROPHYLAXIS
     Dosage: DOSE: 48 MIU
     Route: 058
     Dates: start: 20160529, end: 20160602
  20. BENDAMUSTINE [Suspect]
     Active Substance: BENDAMUSTINE
     Dosage: C2 D1.
     Route: 042
     Dates: start: 20160301
  21. POLARAMINE [Concomitant]
     Active Substance: DEXCHLORPHENIRAMINE MALEATE
     Indication: PREMEDICATION
     Dosage: AS REQUIRED.
     Route: 042
     Dates: start: 20160126
  22. OBINUTUZUMAB [Suspect]
     Active Substance: OBINUTUZUMAB
     Indication: CHRONIC LYMPHOCYTIC LEUKAEMIA
     Dosage: C1 D1.?LAST DOSE PRIOR TO SAE: 24/MAY/2016.
     Route: 042
     Dates: start: 20160126
  23. OBINUTUZUMAB [Suspect]
     Active Substance: OBINUTUZUMAB
     Dosage: C1 D8.
     Route: 042
     Dates: start: 20160202
  24. PRIMPERAN [Concomitant]
     Active Substance: METOCLOPRAMIDE HYDROCHLORIDE
     Route: 048
     Dates: start: 20160426
  25. OBINUTUZUMAB [Suspect]
     Active Substance: OBINUTUZUMAB
     Dosage: C5 D1.
     Route: 042
     Dates: start: 20160524
  26. AMLOR [Concomitant]
     Active Substance: AMLODIPINE BESYLATE
     Route: 048
     Dates: start: 20160415
  27. BRIMONIDINE [Concomitant]
     Active Substance: BRIMONIDINE TARTRATE
     Dosage: DOSE: 1 DROP
     Route: 050
     Dates: start: 2013
  28. OBINUTUZUMAB [Suspect]
     Active Substance: OBINUTUZUMAB
     Dosage: C1 D15.
     Route: 042
     Dates: start: 20160209
  29. OBINUTUZUMAB [Suspect]
     Active Substance: OBINUTUZUMAB
     Dosage: C3 D1.
     Route: 042
     Dates: start: 20160329
  30. BENDAMUSTINE [Suspect]
     Active Substance: BENDAMUSTINE
     Dosage: C2 D2.
     Route: 042
     Dates: start: 20160302
  31. BENDAMUSTINE [Suspect]
     Active Substance: BENDAMUSTINE
     Dosage: C3 D1.
     Route: 042
     Dates: start: 20160329
  32. BENDAMUSTINE [Suspect]
     Active Substance: BENDAMUSTINE
     Dosage: C5 D1.
     Route: 042
     Dates: start: 20160524
  33. PARACETAMOL [Concomitant]
     Active Substance: ACETAMINOPHEN
     Indication: PREMEDICATION
     Dosage: AS REQUIRED.
     Route: 048
     Dates: start: 20160126

REACTIONS (1)
  - Lung disorder [Recovered/Resolved]

NARRATIVE: CASE EVENT DATE: 20160526
